FAERS Safety Report 11766256 (Version 1)
Quarter: 2015Q4

REPORT INFORMATION
  Report Type: Spontaneous
  Country: FR (occurrence: FR)
  Receive Date: 20151123
  Receipt Date: 20151123
  Transmission Date: 20160304
  Serious: Yes (Life-Threatening)
  Sender: FDA-Public Use
  Company Number: FR-ROCHE-1663901

PATIENT
  Age: 53 Year
  Sex: Female

DRUGS (13)
  1. CORTANCYL [Concomitant]
     Active Substance: PREDNISONE
  2. HYPNOVEL (FRANCE) [Concomitant]
     Active Substance: MIDAZOLAM\MIDAZOLAM HYDROCHLORIDE
  3. SUFENTA [Concomitant]
     Active Substance: SUFENTANIL CITRATE
  4. VIMPAT [Concomitant]
     Active Substance: LACOSAMIDE
     Route: 065
     Dates: start: 20150812
  5. PROGRAF [Suspect]
     Active Substance: TACROLIMUS\TACROLIMUS ANHYDROUS
     Dosage: IN THE EVENING
     Route: 048
     Dates: start: 2001, end: 201508
  6. ROCEPHINE [Concomitant]
     Active Substance: CEFTRIAXONE SODIUM
     Route: 065
  7. PENTHOTAL [Concomitant]
     Active Substance: THIOPENTAL SODIUM
     Route: 065
     Dates: start: 20150810, end: 20150817
  8. OFLOCET [Concomitant]
     Active Substance: OFLOXACIN
  9. CELLCEPT [Suspect]
     Active Substance: MYCOPHENOLATE MOFETIL\MYCOPHENOLATE MOFETIL HYDROCHLORIDE
     Indication: RENAL TRANSPLANT
     Route: 048
     Dates: start: 2001, end: 201508
  10. GARDENAL [Concomitant]
     Active Substance: PHENOBARBITAL
     Route: 065
     Dates: start: 20150817
  11. PHENYTOINE [Concomitant]
     Active Substance: PHENYTOIN
     Route: 065
     Dates: start: 20150813
  12. PROGRAF [Suspect]
     Active Substance: TACROLIMUS\TACROLIMUS ANHYDROUS
     Indication: RENAL TRANSPLANT
     Dosage: IN THE MORNING
     Route: 048
     Dates: start: 2001, end: 201508
  13. PHENYTOINE [Concomitant]
     Active Substance: PHENYTOIN
     Route: 065
     Dates: start: 20150808, end: 20150812

REACTIONS (2)
  - Leukoencephalopathy [Unknown]
  - Status epilepticus [Unknown]

NARRATIVE: CASE EVENT DATE: 201508
